FAERS Safety Report 9987309 (Version 2)
Quarter: 2014Q1

REPORT INFORMATION
  Report Type: Spontaneous
  Country: US (occurrence: US)
  Receive Date: 20140307
  Receipt Date: 20140307
  Transmission Date: 20141002
  Serious: No
  Sender: FDA-Public Use
  Company Number: US-AMGEN-USASP2014008399

PATIENT
  Age: 54 Year
  Sex: Male
  Weight: 84.81 kg

DRUGS (7)
  1. ENBREL [Suspect]
     Indication: PSORIATIC ARTHROPATHY
     Dosage: 50 MG, EVERY 10 DAYS
     Route: 058
     Dates: start: 20121114
  2. THERAFLU                           /00446801/ [Concomitant]
     Indication: COUGH
     Dosage: UNK
  3. VITAMIN E                          /00110501/ [Concomitant]
     Dosage: 400 UNIT, UNK
  4. ATORVASTATIN [Concomitant]
     Dosage: 20 MG, UNK
  5. FISH OIL [Concomitant]
     Dosage: UNK
  6. VITAMIN C                          /00008001/ [Concomitant]
     Dosage: 500 MG, UNK
  7. CALCIUM +D                         /07511201/ [Concomitant]
     Dosage: UNK

REACTIONS (3)
  - Hypoaesthesia [Not Recovered/Not Resolved]
  - Influenza [Not Recovered/Not Resolved]
  - Paraesthesia [Not Recovered/Not Resolved]
